FAERS Safety Report 5974797-3 (Version None)
Quarter: 2008Q4

REPORT INFORMATION
  Report Type: 
  Country: None (occurrence: None)
  Receive Date: 20081201
  Receipt Date: 20080207
  Transmission Date: 20090506
  Serious: No
  Sender: FDA-Public Use
  Company Number: US-AMGEN-KDL263290

PATIENT
  Sex: Male

DRUGS (4)
  1. ENBREL [Suspect]
     Indication: PUSTULAR PSORIASIS
     Route: 058
     Dates: start: 20080110
  2. WELLBUTRIN [Concomitant]
     Dates: start: 20010101
  3. SPIRONOLACTONE [Concomitant]
     Dates: start: 20010101
  4. PROGESTERONE [Concomitant]
     Route: 061
     Dates: start: 20050101

REACTIONS (2)
  - DRUG INEFFECTIVE [None]
  - PSORIASIS [None]
